FAERS Safety Report 10272481 (Version 1)
Quarter: 2014Q2

REPORT INFORMATION
  Report Type: Spontaneous
  Country: DE (occurrence: None)
  Receive Date: 20140627
  Receipt Date: 20140627
  Transmission Date: 20141212
  Serious: Yes (Death)
  Sender: FDA-Public Use
  Company Number: DE-DEXPHARM-20140345

PATIENT
  Age: 86 Year
  Sex: Male

DRUGS (9)
  1. VALPROIC ACID [Suspect]
     Indication: PARTIAL SEIZURES
  2. OMEPRAZOLE [Suspect]
  3. CLOPIDOGREL [Suspect]
  4. FUROSEMIDE [Suspect]
  5. CIPROFLOXACIN [Suspect]
  6. DICLOFENAC [Suspect]
  7. CLONAZEPAM [Suspect]
  8. LEVODOPA [Suspect]
  9. HEPARIN [Suspect]

REACTIONS (1)
  - Hepatic failure [None]
